FAERS Safety Report 12210929 (Version 1)
Quarter: 2016Q1

REPORT INFORMATION
  Report Type: Spontaneous
  Country: US (occurrence: None)
  Receive Date: 20160324
  Receipt Date: 20160324
  Transmission Date: 20160526
  Serious: No
  Sender: FDA-Public Use
  Company Number: None

PATIENT
  Age: 58 Year
  Sex: Male

DRUGS (7)
  1. PEPCID [Concomitant]
     Active Substance: FAMOTIDINE
  2. BACLOFEN. [Concomitant]
     Active Substance: BACLOFEN
  3. IBUPROFEN. [Concomitant]
     Active Substance: IBUPROFEN
  4. FAMOTIDINE. [Concomitant]
     Active Substance: FAMOTIDINE
  5. HARVONI [Suspect]
     Active Substance: LEDIPASVIR\SOFOSBUVIR
     Indication: HEPATITIS C
     Dosage: 90-400MG QD ORAL
     Route: 048
     Dates: start: 20160127
  6. TRAZODONE [Concomitant]
     Active Substance: TRAZODONE HYDROCHLORIDE
  7. TUMS [Concomitant]
     Active Substance: CALCIUM CARBONATE

REACTIONS (3)
  - Gastrooesophageal reflux disease [None]
  - Mood altered [None]
  - Headache [None]

NARRATIVE: CASE EVENT DATE: 201602
